FAERS Safety Report 21894985 (Version 1)
Quarter: 2023Q1

REPORT INFORMATION
  Report Type: Report from Study
  Country: RO (occurrence: RO)
  Receive Date: 20230122
  Receipt Date: 20230122
  Transmission Date: 20230417
  Serious: Yes (Death, Other)
  Sender: FDA-Public Use
  Company Number: RO-ABBVIE-4278169

PATIENT
  Age: 77 Year
  Sex: Male

DRUGS (2)
  1. CARBIDOPA\LEVODOPA [Suspect]
     Active Substance: CARBIDOPA\LEVODOPA
     Indication: Parkinson^s disease
     Dosage: DM=9.50 DC=3.60 ED=2.00 NRED=1; DMN=0.00 DCN=0.00 EDN=0.00 NREDN=0
     Route: 050
     Dates: start: 20221220, end: 20230118
  2. CARBIDOPA\LEVODOPA [Suspect]
     Active Substance: CARBIDOPA\LEVODOPA

REACTIONS (12)
  - Clostridial sepsis [Fatal]
  - Brain injury [Fatal]
  - Cardio-respiratory arrest [Fatal]
  - Cardiac failure [Fatal]
  - Limb injury [Fatal]
  - Nausea [Fatal]
  - Dizziness [Fatal]
  - Food refusal [Fatal]
  - Diarrhoea [Fatal]
  - General physical condition abnormal [Fatal]
  - Dehydration [Fatal]
  - Vertigo [Fatal]

NARRATIVE: CASE EVENT DATE: 20230114
